FAERS Safety Report 8117867-6 (Version None)
Quarter: 2012Q1

REPORT INFORMATION
  Report Type: 
  Country: None (occurrence: None)
  Receive Date: 20120207
  Receipt Date: 20120130
  Transmission Date: 20120608
  Serious: Yes (Other)
  Sender: FDA-Public Use
  Company Number: US-ELI_LILLY_AND_COMPANY-US201202000258

PATIENT
  Sex: Male

DRUGS (6)
  1. HUMALOG MIX 75/25 [Suspect]
     Dosage: 14 U, EACH EVENING
  2. HUMALOG MIX 75/25 [Suspect]
     Dosage: 23 U, EACH MORNING
  3. HUMALOG MIX 75/25 [Suspect]
     Indication: TYPE 2 DIABETES MELLITUS
     Dosage: 23 U, EACH MORNING
  4. HUMALOG MIX 75/25 [Suspect]
     Dosage: 14 U, EACH EVENING
  5. HUMALOG MIX 75/25 [Suspect]
     Dosage: 23 U, EACH MORNING
  6. HUMALOG MIX 75/25 [Suspect]
     Dosage: 14 U, EACH EVENING

REACTIONS (3)
  - DRUG DISPENSING ERROR [None]
  - DEMENTIA [None]
  - MALAISE [None]
